FAERS Safety Report 18115692 (Version 2)
Quarter: 2020Q4

REPORT INFORMATION
  Report Type: Spontaneous
  Country: ES (occurrence: ES)
  Receive Date: 20200805
  Receipt Date: 20201007
  Transmission Date: 20210113
  Serious: Yes (Other)
  Sender: FDA-Public Use
  Company Number: ES-UCBSA-2020030645

PATIENT
  Age: 77 Year
  Sex: Male

DRUGS (5)
  1. SINEMET [Suspect]
     Active Substance: CARBIDOPA\LEVODOPA
     Indication: ON AND OFF PHENOMENON
     Dosage: LEVODOPA DOSE: 950 (UNIT UNKNOWN), UNKNOWN
  2. AZILECT [Suspect]
     Active Substance: RASAGILINE MESYLATE
     Indication: ON AND OFF PHENOMENON
     Dosage: UNKNOWN
  3. ONGENTYS [Suspect]
     Active Substance: OPICAPONE
     Indication: ON AND OFF PHENOMENON
     Dosage: UNKNOWN
  4. NEUPRO [Suspect]
     Active Substance: ROTIGOTINE
     Indication: ON AND OFF PHENOMENON
     Dosage: UNKNOWN
  5. NEUPRO [Suspect]
     Active Substance: ROTIGOTINE
     Indication: OFF LABEL USE

REACTIONS (16)
  - Dysphagia [Unknown]
  - Therapeutic response shortened [Unknown]
  - Dysphonia [Unknown]
  - Dystonia [Unknown]
  - Saliva altered [Unknown]
  - Balance disorder [Unknown]
  - Off label use [Unknown]
  - Anxiety [Unknown]
  - Fatigue [Unknown]
  - Sleep disorder [Unknown]
  - Freezing phenomenon [Unknown]
  - Constipation [Unknown]
  - Bradykinesia [Unknown]
  - Depression [Unknown]
  - Muscle rigidity [Unknown]
  - Pain [Unknown]
